FAERS Safety Report 12140626 (Version 1)
Quarter: 2016Q1

REPORT INFORMATION
  Report Type: Spontaneous
  Country: US (occurrence: None)
  Receive Date: 20160302
  Receipt Date: 20160302
  Transmission Date: 20160526
  Serious: Yes (Death, Hospitalization, Disabling)
  Sender: FDA-Public Use
  Company Number: None

PATIENT
  Age: 77 Year
  Sex: Female
  Weight: 49.9 kg

DRUGS (6)
  1. TYLENOL [Concomitant]
     Active Substance: ACETAMINOPHEN
  2. MULTIVITAMIN [Concomitant]
     Active Substance: VITAMINS
  3. ENBREL [Suspect]
     Active Substance: ETANERCEPT
     Indication: RHEUMATOID ARTHRITIS
     Dosage: 50MG/WK INFUSION-NEEDLE INJECTION
     Dates: start: 2011, end: 2011
  4. PREDNISONE. [Concomitant]
     Active Substance: PREDNISONE
  5. CALCIUM [Concomitant]
     Active Substance: CALCIUM
  6. ORENCIA [Suspect]
     Active Substance: ABATACEPT

REACTIONS (15)
  - Myelodysplastic syndrome [None]
  - Cardiac pacemaker insertion [None]
  - Dizziness [None]
  - Acute myeloid leukaemia [None]
  - Epistaxis [None]
  - Pulmonary oedema [None]
  - Infection [None]
  - Asthenia [None]
  - Cardiac failure congestive [None]
  - Pancreatitis [None]
  - Cholelithiasis [None]
  - Aphasia [None]
  - Haemorrhage intracranial [None]
  - Dyspnoea [None]
  - Contusion [None]

NARRATIVE: CASE EVENT DATE: 2011
